FAERS Safety Report 9117158 (Version 1)
Quarter: 2013Q1

REPORT INFORMATION
  Report Type: Spontaneous
  Country: US (occurrence: US)
  Receive Date: 20130208
  Receipt Date: 20130208
  Transmission Date: 20140127
  Serious: Yes (Hospitalization, Other)
  Sender: FDA-Public Use
  Company Number: US-ABBOTT-13P-163-1046418-00

PATIENT
  Sex: Male
  Weight: 74.91 kg

DRUGS (3)
  1. ANDROGEL [Suspect]
     Indication: BLOOD TESTOSTERONE DECREASED
     Dates: start: 2009, end: 201208
  2. ANDROGEL [Suspect]
     Indication: BLOOD TESTOSTERONE DECREASED
     Dosage: 2 PUMPS
     Dates: start: 201209
  3. DILANTIN [Concomitant]
     Indication: POST-TRAUMATIC EPILEPSY

REACTIONS (3)
  - Intervertebral disc degeneration [Unknown]
  - Back pain [Recovering/Resolving]
  - Post procedural complication [Recovering/Resolving]
